FAERS Safety Report 6125883-9 (Version None)
Quarter: 2009Q1

REPORT INFORMATION
  Report Type: 
  Country: None (occurrence: None)
  Receive Date: 20090320
  Receipt Date: 20090319
  Transmission Date: 20090719
  Serious: Yes (Congenital Anomaly, Other)
  Sender: FDA-Public Use
  Company Number: GB-BRISTOL-MYERS SQUIBB COMPANY-14254866

PATIENT
  Age: 37 Year
  Sex: Female

DRUGS (2)
  1. METFORMIN HCL [Suspect]
     Route: 064
  2. THYROXINE [Concomitant]
     Indication: HYPOTHYROIDISM

REACTIONS (5)
  - ABORTION INDUCED [None]
  - DRUG EXPOSURE DURING PREGNANCY [None]
  - MATERNAL DRUGS AFFECTING FOETUS [None]
  - PREGNANCY [None]
  - SPINA BIFIDA [None]
